FAERS Safety Report 20459998 (Version 1)
Quarter: 2022Q1

REPORT INFORMATION
  Report Type: Other
  Country: JP (occurrence: None)
  Receive Date: 20220211
  Receipt Date: 20220211
  Transmission Date: 20220424
  Serious: Yes (Other)
  Sender: FDA-Public Use
  Company Number: JP-ROCHE-3015439

PATIENT

DRUGS (2)
  1. BEVACIZUMAB [Suspect]
     Active Substance: BEVACIZUMAB
     Indication: Hepatocellular carcinoma
     Route: 042
  2. ATEZOLIZUMAB [Concomitant]
     Active Substance: ATEZOLIZUMAB
     Route: 041

REACTIONS (10)
  - Liver injury [Unknown]
  - Diarrhoea [Unknown]
  - Hypertension [Unknown]
  - Decreased appetite [Unknown]
  - Proteinuria [Unknown]
  - Pyrexia [Unknown]
  - Fatigue [Unknown]
  - Ascites [Unknown]
  - Oedema due to hepatic disease [Unknown]
  - Epistaxis [Unknown]
